FAERS Safety Report 25686594 (Version 1)
Quarter: 2025Q3

REPORT INFORMATION
  Report Type: Spontaneous
  Country: US (occurrence: US)
  Receive Date: 20250816
  Receipt Date: 20250816
  Transmission Date: 20251021
  Serious: Yes (Hospitalization, Other)
  Sender: DIFGEN PHARMACEUTICALS LLC
  Company Number: US-Difgen-012114

PATIENT
  Age: 66 Year
  Sex: Male

DRUGS (11)
  1. COCAINE [Suspect]
     Active Substance: COCAINE
     Indication: Product used for unknown indication
     Route: 065
  2. DIPHENHYDRAMINE [Suspect]
     Active Substance: DIPHENHYDRAMINE
     Indication: Product used for unknown indication
     Route: 065
  3. MEDETOMIDINE [Suspect]
     Active Substance: MEDETOMIDINE
     Indication: Product used for unknown indication
     Route: 065
  4. PARAFLUOROFENTANYL [Suspect]
     Active Substance: PARAFLUOROFENTANYL
     Indication: Product used for unknown indication
     Route: 065
  5. QUININE [Suspect]
     Active Substance: QUININE
     Indication: Product used for unknown indication
     Route: 065
  6. XYLAZINE [Suspect]
     Active Substance: XYLAZINE
     Indication: Product used for unknown indication
     Route: 065
  7. DESPROPIONYLFENTANYL [Suspect]
     Active Substance: DESPROPIONYLFENTANYL
     Indication: Product used for unknown indication
     Route: 065
  8. 6-ACETYLMORPHINE [Suspect]
     Active Substance: 6-ACETYLMORPHINE
     Indication: Product used for unknown indication
     Route: 065
  9. DESPROPIONYL P-FLUOROFENTANYL [Suspect]
     Active Substance: DESPROPIONYL P-FLUOROFENTANYL
     Indication: Product used for unknown indication
     Route: 065
  10. HEROIN [Suspect]
     Active Substance: DIAMORPHINE
     Indication: Product used for unknown indication
     Route: 065
  11. FENTANYL [Suspect]
     Active Substance: FENTANYL
     Indication: Product used for unknown indication
     Route: 065

REACTIONS (14)
  - Diastolic dysfunction [Recovered/Resolved]
  - Rhinorrhoea [Recovered/Resolved]
  - Overdose [Recovered/Resolved]
  - Unresponsive to stimuli [Recovered/Resolved]
  - Adulterated product [Recovered/Resolved]
  - Hypertension [Recovered/Resolved]
  - Miosis [Recovered/Resolved]
  - Dizziness [Recovered/Resolved]
  - Somnolence [Recovered/Resolved]
  - Sedation [Recovered/Resolved]
  - Mental status changes [Recovered/Resolved]
  - Sinus bradycardia [Recovered/Resolved]
  - Drug use disorder [Recovered/Resolved]
  - Withdrawal syndrome [Recovered/Resolved]
